FAERS Safety Report 6943075-8 (Version None)
Quarter: 2010Q3

REPORT INFORMATION
  Report Type: 
  Country: None (occurrence: None)
  Receive Date: 20100826
  Receipt Date: 20100823
  Transmission Date: 20110219
  Serious: Yes (Hospitalization)
  Sender: FDA-Public Use
  Company Number: US-BRISTOL-MYERS SQUIBB COMPANY-15251911

PATIENT
  Age: 61 Year
  Sex: Male
  Weight: 68 kg

DRUGS (4)
  1. ERBITUX [Suspect]
     Indication: NON-SMALL CELL LUNG CANCER
     Dosage: 400MG/M2 DAY 1, 250MG/WK;LAST DOSE ON 26JUL10 INTERRUPTED ON 02AUG10
     Dates: start: 20100621
  2. CARBOPLATIN [Suspect]
     Indication: NON-SMALL CELL LUNG CANCER
     Dosage: 45MG/M2/WK; LAST DOSE ON 26JUL10 INTERRUPTED ON 02AUG10
     Dates: start: 20100621
  3. TAXOL [Suspect]
     Indication: NON-SMALL CELL LUNG CANCER
     Dosage: AUC WEEKLY; LAST DOSE ON 26JUL10 INTERRUPTED ON 02AUG10
     Dates: start: 20100721
  4. RADIOTHERAPY [Suspect]
     Indication: NON-SMALL CELL LUNG CANCER
     Dosage: 1DF-48GY LAST DOSE 02AUG10
     Dates: start: 20100621, end: 20100802

REACTIONS (1)
  - APPENDICITIS PERFORATED [None]
